FAERS Safety Report 9748363 (Version 1)
Quarter: 2013Q4

REPORT INFORMATION
  Report Type: Spontaneous
  Country: US (occurrence: None)
  Receive Date: 20131206
  Receipt Date: 20131206
  Transmission Date: 20140711
  Serious: Yes (Hospitalization)
  Sender: FDA-Public Use
  Company Number: None

PATIENT
  Age: 10 Year
  Sex: Female
  Weight: 42 kg

DRUGS (57)
  1. DEXAMETHASONE [Suspect]
  2. MERCAPTOPURINE [Suspect]
  3. METHOTREXATE [Suspect]
  4. VINCRISTINE SULFATE [Suspect]
  5. ACETAZOLAMIDE [Concomitant]
  6. ALBUMIN [Concomitant]
  7. ANAKINRA [Concomitant]
  8. ATIVAN [Concomitant]
  9. BACTRIM [Concomitant]
  10. BENEDRYL [Concomitant]
  11. CALCIUM CHLORIDE [Concomitant]
  12. CALCIUM GLUCONATE [Concomitant]
  13. CASPOFUNGIN [Concomitant]
  14. CEFEPIME [Concomitant]
  15. CIPROFLOXACIN [Concomitant]
  16. CISATRACURIUM [Concomitant]
  17. CREON [Concomitant]
  18. DEXAMETHASONE [Concomitant]
  19. DEXMEDETOMIDINE [Concomitant]
  20. DIAMOX [Concomitant]
  21. DILAUDID [Concomitant]
  22. DIPHENHYDRAMINE [Concomitant]
  23. DOPAMINE [Concomitant]
  24. ETAVIL [Concomitant]
  25. EPINEPHRINE [Concomitant]
  26. ESOMEPRAZOLE [Concomitant]
  27. FENTANCYL [Concomitant]
  28. FILGRASTIN [Concomitant]
  29. FLAGYL [Concomitant]
  30. GENTAMICIN [Concomitant]
  31. HYDROCORTISONE [Concomitant]
  32. INSULIN [Concomitant]
  33. KYTRIL [Concomitant]
  34. LASIX [Concomitant]
  35. LIDOCAINE [Concomitant]
  36. MS CONTIN [Concomitant]
  37. MAGNESIUM SULFATE [Concomitant]
  38. NEROPENEM [Concomitant]
  39. METHADONE [Concomitant]
  40. METRONIDAZOLE [Concomitant]
  41. NEXIUM [Concomitant]
  42. NIMBEX [Concomitant]
  43. NOREPINEPHRINE [Concomitant]
  44. NOVO-SEVEN [Concomitant]
  45. PEPCID [Concomitant]
  46. PERIACTIN [Concomitant]
  47. PHYTONADIONE [Concomitant]
  48. POTASSIUM CHLORIDE [Concomitant]
  49. POTASSIUM PHOSPHATE [Concomitant]
  50. PRECEDEX [Concomitant]
  51. PROLYTIC [Concomitant]
  52. RANITIDINE [Concomitant]
  53. SCOPLAMINE [Concomitant]
  54. SODIUM BICARBONATE [Concomitant]
  55. VANCOMYCIN [Concomitant]
  56. VASOPRESSIN [Concomitant]
  57. ZOFRAN [Concomitant]

REACTIONS (5)
  - Pancreatitis necrotising [None]
  - Multi-organ failure [None]
  - Respiratory failure [None]
  - Coagulopathy [None]
  - Neurological symptom [None]
